FAERS Safety Report 9320325 (Version 4)
Quarter: 2013Q3

REPORT INFORMATION
  Report Type: Spontaneous
  Country: CA (occurrence: CA)
  Receive Date: 20130530
  Receipt Date: 20130712
  Transmission Date: 20140515
  Serious: Yes (Other)
  Sender: FDA-Public Use
  Company Number: CA-ALEXION-A201300911

PATIENT
  Age: 86 Year
  Sex: Female
  Weight: 69.84 kg

DRUGS (21)
  1. SOLIRIS 300MG [Suspect]
     Indication: PAROXYSMAL NOCTURNAL HAEMOGLOBINURIA
     Dosage: 600 MG, QW
     Route: 042
     Dates: start: 20111116, end: 20111207
  2. SOLIRIS 300MG [Suspect]
     Dosage: 900 MG, Q2W
     Route: 042
     Dates: start: 20111214
  3. SYNTHROID [Concomitant]
     Indication: THYROID DISORDER
     Dosage: 0.05 MG, QD
     Route: 048
  4. PANTOPRAZOLE [Concomitant]
     Dosage: 40 MG, QD
     Route: 048
     Dates: start: 20111020
  5. PREDNISONE [Concomitant]
     Dosage: 40 MG, QD
     Route: 048
     Dates: start: 20111020
  6. EURO-FER [Concomitant]
     Indication: SUPPLEMENTATION THERAPY
     Dosage: 1 DF, QD
     Route: 048
     Dates: start: 20111020
  7. VITAMIN B12 [Concomitant]
     Indication: VITAMIN B12 DEFICIENCY
     Dosage: 1000 MCG, ONCE A MONTH
     Route: 030
     Dates: start: 20110201
  8. CALCITE D [Concomitant]
     Indication: SUPPLEMENTATION THERAPY
     Dosage: 500 MG-400 UL, BID
     Route: 048
     Dates: start: 20110223
  9. D-GEL [Concomitant]
     Dosage: 1000 UI, QD
  10. ALTACE-HCT [Concomitant]
     Dosage: 2.5-12.5 MG, QD
     Route: 048
  11. APO-FOLIC [Concomitant]
     Indication: SUPPLEMENTATION THERAPY
     Dosage: 5 MG, QD
     Route: 048
     Dates: start: 20111020
  12. BENEFIBER [Concomitant]
     Dosage: 2 DF (TEASPOONS), QD
     Route: 048
  13. COSOPT2 0.5% [Concomitant]
     Dosage: 1 GTT BID
     Route: 047
  14. CLAVULIN [Concomitant]
     Indication: PROPHYLAXIS
     Dosage: UNK, BID
     Route: 048
     Dates: end: 20120326
  15. GLYCERIN [Concomitant]
     Indication: CONSTIPATION
     Dosage: 1 DF, PRN
     Route: 054
     Dates: start: 20120822
  16. STATEX [Concomitant]
     Indication: PAIN IN EXTREMITY
     Dosage: 25 MG, PRN
     Route: 048
     Dates: start: 201211, end: 201211
  17. STATEX [Concomitant]
     Indication: PAIN IN EXTREMITY
  18. TYLENOL [Concomitant]
     Indication: PAIN
     Dosage: 325 MG, PRN
     Route: 048
     Dates: start: 201211, end: 201301
  19. TYLENOL [Concomitant]
     Dosage: 650 MG, PRN
     Route: 048
     Dates: start: 20130417
  20. LYRICA [Concomitant]
     Indication: PAIN
     Dosage: 25 MG, BID
     Route: 048
     Dates: start: 20121112, end: 2012
  21. GAVISCON [Concomitant]
     Indication: PROPHYLAXIS
     Dosage: UNK, PRN
     Route: 048
     Dates: start: 20130417

REACTIONS (2)
  - Sciatica [Recovered/Resolved]
  - Platelet count decreased [Recovered/Resolved]
